FAERS Safety Report 8760918 (Version 1)
Quarter: 2012Q4

REPORT INFORMATION
  Report Type: 
  Country: FR (occurrence: FR)
  Receive Date: 20120830
  Receipt Date: 20120830
  Transmission Date: 20130627
  Serious: Yes (Hospitalization)
  Sender: FDA-Public Use
  Company Number: FR-ASTRAZENECA-2012SE61164

PATIENT
  Sex: Female

DRUGS (3)
  1. DIPRIVAN [Suspect]
     Route: 042
     Dates: start: 20120627, end: 20120627
  2. ALFENTANIL HYDROCHLORIDE [Suspect]
     Route: 042
     Dates: start: 20120627, end: 20120627
  3. ANCEF [Suspect]
     Route: 065
     Dates: start: 20120627, end: 20120627

REACTIONS (4)
  - Breath sounds abnormal [Recovered/Resolved]
  - Bronchospasm [Recovered/Resolved]
  - Urticaria [Recovered/Resolved]
  - Erythema [None]
